FAERS Safety Report 25059408 (Version 3)
Quarter: 2025Q3

REPORT INFORMATION
  Report Type: Report from Study
  Country: MY (occurrence: MY)
  Receive Date: 20250310
  Receipt Date: 20250802
  Transmission Date: 20251020
  Serious: Yes (Death, Other)
  Sender: ALEXION PHARMACEUTICALS
  Company Number: MY-AstraZeneca-CH-00822422A

PATIENT
  Age: 60 Year
  Sex: Male

DRUGS (1)
  1. OSIMERTINIB [Suspect]
     Active Substance: OSIMERTINIB
     Indication: Off label use
     Dosage: 80 MILLIGRAM, QD

REACTIONS (2)
  - Disease progression [Fatal]
  - Drug resistance [Unknown]

NARRATIVE: CASE EVENT DATE: 20241229
